FAERS Safety Report 17258419 (Version 3)
Quarter: 2020Q1

REPORT INFORMATION
  Report Type: Spontaneous
  Country: CN (occurrence: CN)
  Receive Date: 20200110
  Receipt Date: 20200121
  Transmission Date: 20200409
  Serious: Yes (Hospitalization)
  Sender: FDA-Public Use
  Company Number: CN-ASTRAZENECA-2020SE01982

PATIENT
  Age: 636 Month
  Sex: Female
  Weight: 62 kg

DRUGS (1)
  1. TAGRISSO [Suspect]
     Active Substance: OSIMERTINIB
     Indication: LUNG NEOPLASM MALIGNANT
     Route: 048
     Dates: start: 20190119

REACTIONS (8)
  - Scratch [Recovered/Resolved]
  - Pustule [Recovered/Resolved]
  - Malignant neoplasm progression [Not Recovered/Not Resolved]
  - Scar [Recovered/Resolved]
  - Metastasis [Not Recovered/Not Resolved]
  - Immunodeficiency [Recovered/Resolved]
  - Mouth ulceration [Unknown]
  - Hypoaesthesia [Not Recovered/Not Resolved]

NARRATIVE: CASE EVENT DATE: 201904
